FAERS Safety Report 19155703 (Version 4)
Quarter: 2021Q2

REPORT INFORMATION
  Report Type: Other
  Country: AT (occurrence: AT)
  Receive Date: 20210420
  Receipt Date: 20210521
  Transmission Date: 20210717
  Serious: Yes (Other)
  Sender: FDA-Public Use
  Company Number: AT-CELLTRION INC.-2021AT005048

PATIENT

DRUGS (34)
  1. PERTUZUMAB. [Suspect]
     Active Substance: PERTUZUMAB
     Dosage: 420 MG EVERY 3 WEEKS
     Route: 042
     Dates: start: 20180423, end: 20181123
  2. NAB?PACLITAXEL [Suspect]
     Active Substance: PACLITAXEL
     Dosage: 171.51 MG, EVERY 1 WEEK
     Route: 042
     Dates: start: 20181102, end: 20181123
  3. NAB?PACLITAXEL [Suspect]
     Active Substance: PACLITAXEL
     Dosage: 172.67 MG, EVERY 1 WEEK
     Route: 042
     Dates: start: 20190102, end: 20190102
  4. KYTRIL [Concomitant]
     Active Substance: GRANISETRON HYDROCHLORIDE
     Dosage: UNK
     Dates: start: 20190131, end: 20190517
  5. DEXABENE [Concomitant]
     Dosage: UNK
     Dates: start: 20190116, end: 20190116
  6. TRASTUZUMAB (UNKNOWN) [Suspect]
     Active Substance: TRASTUZUMAB
     Dosage: 372 MG EVERY 3 WEEKS
     Route: 042
     Dates: start: 20180626, end: 20181010
  7. TRASTUZUMAB (UNKNOWN) [Suspect]
     Active Substance: TRASTUZUMAB
     Dosage: 408 MG EVERY 3 WEEKS
     Route: 042
     Dates: start: 20180423, end: 20180423
  8. TRASTUZUMAB (UNKNOWN) [Suspect]
     Active Substance: TRASTUZUMAB
     Dosage: 378 MG EVERY 3 WEEKS
     Route: 042
     Dates: start: 20181102, end: 20181102
  9. PACLITAXEL. [Suspect]
     Active Substance: PACLITAXEL
     Dosage: MOST RECERNT DOSE PRIOR TO EVENT: 09/APR/2018
     Route: 042
     Dates: start: 20180328
  10. PERTUZUMAB. [Suspect]
     Active Substance: PERTUZUMAB
     Indication: BREAST CANCER METASTATIC
     Dosage: 840 MG EVERY 3 WEEKS ,MOST RECENT DOSE PRIOR TO THE EVENTS: 23/APR/2018 MOST RECENT DOSE PRIOR TO TH
     Route: 042
     Dates: start: 20180328
  11. PERTUZUMAB. [Suspect]
     Active Substance: PERTUZUMAB
     Dosage: 420 MG EVERY 3 WEEKS
     Route: 042
     Dates: start: 20181214, end: 20190109
  12. NAB?PACLITAXEL [Suspect]
     Active Substance: PACLITAXEL
     Dosage: 171.51 MG, EVERY 1 WEEK
     Route: 042
     Dates: start: 20181207, end: 20181221
  13. NAB?PACLITAXEL [Suspect]
     Active Substance: PACLITAXEL
     Dosage: 172.67 MG, EVERY 1 WEEK (MOST RECENT DOSE PRIOR TO AE 16/JAN/2019)
     Route: 042
     Dates: start: 20190116
  14. KYTRIL [Concomitant]
     Active Substance: GRANISETRON HYDROCHLORIDE
     Dosage: UNK
     Dates: start: 20190116, end: 20190116
  15. ULSAL [Concomitant]
     Active Substance: RANITIDINE HYDROCHLORIDE
     Dosage: UNK
     Dates: start: 20181102, end: 20190109
  16. NAB?PACLITAXEL [Suspect]
     Active Substance: PACLITAXEL
     Dosage: 171.51 MG, EVERY 1 WEEK
     Route: 042
     Dates: start: 20190109, end: 20190109
  17. NAB?PACLITAXEL [Suspect]
     Active Substance: PACLITAXEL
     Dosage: 172.67 MG, EVERY 1 WEEK
     Route: 042
     Dates: start: 20180605, end: 20180605
  18. DEXAMETHASON [DEXAMETHASONE] [Concomitant]
     Active Substance: DEXAMETHASONE
     Dosage: UNK
     Dates: start: 20190131, end: 20190517
  19. FENISTIL [Concomitant]
     Active Substance: DIMETHINDENE
  20. TRASTUZUMAB (UNKNOWN) [Suspect]
     Active Substance: TRASTUZUMAB
     Dosage: 384 MG EVERY 3 WEEKS
     Route: 042
     Dates: start: 20180515, end: 20180605
  21. NAB?PACLITAXEL [Suspect]
     Active Substance: PACLITAXEL
     Dosage: 177.17 MG, EVERY 1 WEEK
     Route: 042
     Dates: start: 20180522, end: 20180529
  22. DEXAMETHASON [DEXAMETHASONE] [Concomitant]
     Active Substance: DEXAMETHASONE
     Dosage: UNK
     Dates: start: 20180423
  23. NAB?PACLITAXEL [Suspect]
     Active Substance: PACLITAXEL
     Dosage: 172.67 MG, EVERY 1 WEEK
     Route: 042
     Dates: start: 20180515, end: 20180515
  24. CALCIDURAN [Concomitant]
     Active Substance: ASCORBIC ACID\CALCIUM PHOSPHATE\CHOLECALCIFEROL\CITRIC ACID MONOHYDRATE
     Dosage: UNK
     Dates: start: 20180612, end: 20190425
  25. TRASTUZUMAB (UNKNOWN) [Suspect]
     Active Substance: TRASTUZUMAB
     Indication: BREAST CANCER METASTATIC
     Dosage: 378 MG, EVERY 1 WEEK
     Route: 042
     Dates: start: 20181123, end: 20181123
  26. TRASTUZUMAB (UNKNOWN) [Suspect]
     Active Substance: TRASTUZUMAB
     Dosage: 600 MG EVERY 3 WEEKS MOST RECENT DOSE PRIOR TO POLYNEUROPATHY IN THE FINGERTIPS (FIRST EPISODE): 15/
     Route: 042
     Dates: start: 20180328
  27. NAB?PACLITAXEL [Suspect]
     Active Substance: PACLITAXEL
     Dosage: 170.35 MG EVERY 1 WEEK
     Route: 042
     Dates: start: 20180626, end: 20180718
  28. DEXABENE [Concomitant]
     Dosage: UNK
     Dates: start: 20181102, end: 20190109
  29. PACLITAXEL. [Suspect]
     Active Substance: PACLITAXEL
     Indication: BREAST CANCER METASTATIC
     Dosage: RECEIVED DOSE ON 08/MAY/2018 AND MOST RECENT DOSE PRIOR TO POLYNEUROPATHY IN THE FINGERTIPS ON 22/MA
     Route: 042
     Dates: start: 20180416
  30. NAB?PACLITAXEL [Suspect]
     Active Substance: PACLITAXEL
     Indication: BREAST CANCER METASTATIC
     Dosage: 177.17 MG, EVERY 1 WEEKS
     Route: 042
     Dates: start: 20180416, end: 20180508
  31. NAB?PACLITAXEL [Suspect]
     Active Substance: PACLITAXEL
     Dosage: 177.17 MG, EVERY 1 WEEKS
     Route: 042
     Dates: start: 20180612, end: 20180619
  32. DEXAMETHASON [DEXAMETHASONE] [Concomitant]
     Active Substance: DEXAMETHASONE
     Dosage: UNK
     Dates: start: 20180416, end: 20190109
  33. KYTRIL [Concomitant]
     Active Substance: GRANISETRON HYDROCHLORIDE
     Dosage: UNK
     Dates: start: 20181102, end: 20190109
  34. FENAKUT [Concomitant]
     Dosage: UNK
     Dates: start: 20181102, end: 20190109

REACTIONS (7)
  - Conjunctivitis [Recovered/Resolved]
  - Polyneuropathy [Recovered/Resolved]
  - Onycholysis [Recovered/Resolved]
  - Nasopharyngitis [Recovered/Resolved]
  - Polyneuropathy [Recovered/Resolved]
  - Overdose [Unknown]
  - Underdose [Unknown]

NARRATIVE: CASE EVENT DATE: 20180522
